FAERS Safety Report 5001592-4 (Version None)
Quarter: 2006Q2

REPORT INFORMATION
  Report Type: 
  Country: None (occurrence: None)
  Receive Date: 20060511
  Receipt Date: 20060511
  Transmission Date: 20061013
  Serious: Yes (Hospitalization)
  Sender: FDA-Public Use
  Company Number: None

PATIENT
  Age: 55 Year
  Sex: Male
  Weight: 71 kg

DRUGS (3)
  1. CEFAZOLIN [Suspect]
     Indication: PROPHYLAXIS
     Dosage: 1 GRAM  IV
     Route: 042
     Dates: start: 20060302, end: 20060302
  2. VECURONIUM BROMIDE [Suspect]
     Indication: ANAESTHESIA
     Dates: start: 20060302, end: 20060302
  3. ETOMIDATE [Suspect]
     Indication: ANAESTHESIA
     Dates: start: 20060302, end: 20060302

REACTIONS (2)
  - ELECTROMECHANICAL DISSOCIATION [None]
  - TACHYCARDIA [None]
